FAERS Safety Report 19919505 (Version 1)
Quarter: 2021Q4

REPORT INFORMATION
  Report Type: Report from Study
  Country: US (occurrence: US)
  Receive Date: 20211005
  Receipt Date: 20211005
  Transmission Date: 20220303
  Serious: Yes (Other)
  Sender: FDA-Public Use
  Company Number: 2021A750135

PATIENT
  Age: 67 Year
  Sex: Female
  Weight: 74.8 kg

DRUGS (1)
  1. TAGRISSO [Suspect]
     Active Substance: OSIMERTINIB
     Indication: Non-small cell lung cancer
     Route: 048
     Dates: start: 20200213

REACTIONS (3)
  - Nausea [Unknown]
  - Asthenia [Unknown]
  - Depression [Unknown]
